FAERS Safety Report 22641488 (Version 1)
Quarter: 2023Q2

REPORT INFORMATION
  Report Type: Spontaneous
  Country: FR (occurrence: FR)
  Receive Date: 20230626
  Receipt Date: 20230626
  Transmission Date: 20230722
  Serious: Yes (Hospitalization, Other)
  Sender: FDA-Public Use
  Company Number: FR-ABBVIE-5303649

PATIENT
  Age: 63 Year
  Sex: Male

DRUGS (7)
  1. DEPAKOTE [Suspect]
     Active Substance: DIVALPROEX SODIUM
     Indication: Disturbance in social behaviour
     Dosage: TID (500 MG TWICE WITH EACH MEAL, MORNING, NOON AND EVENING, I.E 3G PER DAY)
     Route: 048
  2. VENLAFAXINE HYDROCHLORIDE [Concomitant]
     Active Substance: VENLAFAXINE HYDROCHLORIDE
     Indication: Product used for unknown indication
     Route: 048
  3. BENSERAZIDE HYDROCHLORIDE\LEVODOPA [Concomitant]
     Active Substance: BENSERAZIDE HYDROCHLORIDE\LEVODOPA
     Indication: Product used for unknown indication
     Route: 048
     Dates: start: 20230103
  4. VILDAGLIPTIN [Suspect]
     Active Substance: VILDAGLIPTIN
     Indication: Type 2 diabetes mellitus
     Dosage: 50 MILLIGRAM
     Route: 048
     Dates: start: 20230303, end: 20230418
  5. KARDEGIC [Concomitant]
     Active Substance: ASPIRIN DL-LYSINE
     Indication: Product used for unknown indication
     Route: 048
  6. ATORVASTATIN CALCIUM [Suspect]
     Active Substance: ATORVASTATIN CALCIUM
     Indication: Dyslipidaemia
     Dosage: FILM-COATED
     Route: 048
  7. SITAGLIPTIN [Suspect]
     Active Substance: SITAGLIPTIN
     Indication: Type 2 diabetes mellitus
     Dosage: 100 MILLIGRAM
     Route: 048

REACTIONS (1)
  - Pancreatitis acute [Recovered/Resolved]

NARRATIVE: CASE EVENT DATE: 20230418
